FAERS Safety Report 11513801 (Version 10)
Quarter: 2016Q3

REPORT INFORMATION
  Report Type: Spontaneous
  Country: US (occurrence: US)
  Receive Date: 20150916
  Receipt Date: 20160929
  Transmission Date: 20161109
  Serious: No
  Sender: FDA-Public Use
  Company Number: US-PFIZER INC-2015296947

PATIENT
  Age: 78 Year
  Sex: Female
  Weight: 62 kg

DRUGS (6)
  1. IBRANCE [Suspect]
     Active Substance: PALBOCICLIB
     Dosage: 125 MG, CYCLIC (DAY 1-21 Q 28 DAYS)
     Route: 048
     Dates: start: 20150820
  2. IBRANCE [Suspect]
     Active Substance: PALBOCICLIB
     Dosage: 125 MG, CYCLIC (1-21 Q 28 DAYS)
     Route: 048
     Dates: start: 20150820
  3. IBRANCE [Suspect]
     Active Substance: PALBOCICLIB
     Dosage: 125 MG, CYCLIC (DAY 1-21 Q 28 DAYS)
     Route: 048
  4. IBRANCE [Suspect]
     Active Substance: PALBOCICLIB
     Dosage: 125 MG, CYCLIC (1-21 Q 28 DAYS)
     Route: 048
     Dates: start: 20150820
  5. IBRANCE [Suspect]
     Active Substance: PALBOCICLIB
     Indication: BREAST CANCER METASTATIC
     Dosage: 125 MG, CYCLIC (DAY 1-21 Q 28 DAYS)
     Route: 048
     Dates: start: 20150820
  6. IBRANCE [Suspect]
     Active Substance: PALBOCICLIB
     Dosage: 125 MG, CYCLIC(DAYS 1-21 Q28 DAYS)
     Route: 048
     Dates: start: 20150815

REACTIONS (27)
  - Nausea [Unknown]
  - Arthralgia [Unknown]
  - Pruritus [Unknown]
  - Dysuria [Unknown]
  - Paraesthesia [Unknown]
  - Disease progression [Unknown]
  - Breast cancer metastatic [Unknown]
  - Flatulence [Unknown]
  - White blood cell count decreased [Unknown]
  - Dyspnoea [Unknown]
  - Impaired healing [Unknown]
  - Limb discomfort [Unknown]
  - Tenderness [Unknown]
  - Acne [Unknown]
  - Laceration [Unknown]
  - Skin exfoliation [Unknown]
  - Sciatica [Not Recovered/Not Resolved]
  - Contusion [Unknown]
  - Pain in extremity [Unknown]
  - Erythema [Unknown]
  - Laceration [Unknown]
  - Abdominal discomfort [Unknown]
  - Abdominal pain lower [Unknown]
  - Alopecia [Unknown]
  - Skin haemorrhage [Unknown]
  - Skin disorder [Unknown]
  - Joint swelling [Unknown]

NARRATIVE: CASE EVENT DATE: 20150911
